FAERS Safety Report 20379870 (Version 1)
Quarter: 2022Q1

REPORT INFORMATION
  Report Type: Spontaneous
  Country: US (occurrence: None)
  Receive Date: 20220126
  Receipt Date: 20220126
  Transmission Date: 20220423
  Serious: No
  Sender: FDA-Public Use
  Company Number: None

PATIENT
  Age: 57 Year
  Sex: Male
  Weight: 85.5 kg

DRUGS (1)
  1. NEBIVOLOL [Suspect]
     Active Substance: NEBIVOLOL
     Indication: Atrial fibrillation
     Dosage: OTHER QUANTITY : 1 TABLET(S);?
     Route: 048
     Dates: start: 20220123, end: 20220125

REACTIONS (4)
  - Somnolence [None]
  - Headache [None]
  - Feeling abnormal [None]
  - Product substitution issue [None]

NARRATIVE: CASE EVENT DATE: 20220125
